FAERS Safety Report 6880796-X (Version None)
Quarter: 2010Q3

REPORT INFORMATION
  Report Type: 
  Country: None (occurrence: None)
  Receive Date: 20100728
  Receipt Date: 20100721
  Transmission Date: 20110219
  Serious: Yes (Death, Hospitalization, Other)
  Sender: FDA-Public Use
  Company Number: IT-ELI_LILLY_AND_COMPANY-IT201004003856

PATIENT
  Sex: Female

DRUGS (6)
  1. GEMZAR [Suspect]
     Indication: BILIARY NEOPLASM
     Dosage: 1400 MG, UNKNOWN
     Route: 042
     Dates: start: 20091221, end: 20100401
  2. GEMZAR [Suspect]
     Dosage: 1000 MG, UNKNOWN
     Route: 065
     Dates: start: 20100401, end: 20100401
  3. GEMZAR [Suspect]
     Dosage: 200 MG, UNKNOWN
     Route: 065
     Dates: start: 20100401, end: 20100401
  4. DELTACORTENE [Concomitant]
     Dosage: 25 MG, OTHER
     Route: 065
  5. ZYRTEC [Concomitant]
     Dosage: UNK, OTHER
     Route: 065
  6. RAMIPRIL [Concomitant]
     Indication: HYPERTENSION

REACTIONS (7)
  - ALANINE AMINOTRANSFERASE ABNORMAL [None]
  - ASPARTATE AMINOTRANSFERASE ABNORMAL [None]
  - BLOOD BILIRUBIN ABNORMAL [None]
  - CEREBRAL HAEMORRHAGE [None]
  - JAUNDICE [None]
  - MALIGNANT NEOPLASM PROGRESSION [None]
  - PANCYTOPENIA [None]
